FAERS Safety Report 5015249-7 (Version None)
Quarter: 2006Q2

REPORT INFORMATION
  Report Type: 
  Country: None (occurrence: None)
  Receive Date: 20060425
  Receipt Date: 20060307
  Transmission Date: 20061013
  Serious: No
  Sender: FDA-Public Use
  Company Number: 2006-BP-01395BP

PATIENT
  Age: 46 Year
  Sex: Male

DRUGS (13)
  1. APTIVUS/RITONAVIR CAPSULES [Suspect]
     Indication: HIV INFECTION
     Dosage: 1000MG/400MG TPV/R (SEE TEXT,500 MG/200 MG BID TPV/R),PO
     Route: 048
     Dates: start: 20051230, end: 20060118
  2. FUZEON [Concomitant]
  3. VIREAD [Concomitant]
  4. ZIAGEN [Concomitant]
  5. ZERIT [Concomitant]
  6. DAPSONE [Concomitant]
  7. XANAX [Concomitant]
  8. MULTIVITAMIN [Concomitant]
  9. METHADONE HCL [Concomitant]
  10. LAC-HYDRIN (AMMONIUM LACTATE) [Concomitant]
  11. VITAMIN E [Concomitant]
  12. ASCORBIC ACID [Concomitant]
  13. LUBRICATING JELLY [Concomitant]

REACTIONS (1)
  - LIVER FUNCTION TEST ABNORMAL [None]
